FAERS Safety Report 4884391-3 (Version None)
Quarter: 2006Q1

REPORT INFORMATION
  Report Type: 
  Country: None (occurrence: None)
  Receive Date: 20060117
  Receipt Date: 20060117
  Transmission Date: 20060701
  Serious: Yes (Hospitalization)
  Sender: FDA-Public Use
  Company Number: None

PATIENT
  Age: 83 Year
  Sex: Male

DRUGS (3)
  1. ZOCOR [Suspect]
     Indication: CARDIAC DISORDER
     Dosage: 40 MG QD PO
     Route: 048
  2. ZOCOR [Suspect]
     Indication: HYPERLIPIDAEMIA
     Dosage: 40 MG QD PO
     Route: 048
  3. ZOCOR [Suspect]
     Indication: PROPHYLAXIS
     Dosage: 40 MG QD PO
     Route: 048

REACTIONS (1)
  - RHABDOMYOLYSIS [None]
